FAERS Safety Report 6593655-7 (Version None)
Quarter: 2010Q1

REPORT INFORMATION
  Report Type: 
  Country: None (occurrence: None)
  Receive Date: 20100222
  Receipt Date: 20091211
  Transmission Date: 20100710
  Serious: Yes (Other)
  Sender: FDA-Public Use
  Company Number: US-BRISTOL-MYERS SQUIBB COMPANY-14806749

PATIENT
  Age: 63 Year
  Sex: Female
  Weight: 95 kg

DRUGS (4)
  1. ORENCIA [Suspect]
     Indication: RHEUMATOID ARTHRITIS
     Dosage: LAST DOSE ON JUL-2009;RECEIVED 3 VIALS;
     Route: 042
     Dates: start: 20071102
  2. ENBREL [Suspect]
  3. HUMIRA [Suspect]
  4. METHOTREXATE [Suspect]

REACTIONS (1)
  - BREAST CANCER IN SITU [None]
